FAERS Safety Report 15001516 (Version 2)
Quarter: 2018Q3

REPORT INFORMATION
  Report Type: Report from Study
  Country: US (occurrence: US)
  Receive Date: 20180612
  Receipt Date: 20180705
  Transmission Date: 20181010
  Serious: Yes (Other)
  Sender: FDA-Public Use
  Company Number: US-BAYER-2018-066520

PATIENT
  Age: 59 Year
  Sex: Female

DRUGS (3)
  1. STIVARGA [Suspect]
     Active Substance: REGORAFENIB
     Indication: COLORECTAL CANCER METASTATIC
     Dosage: DAILY 3 WEEKS ON ONE WEEK OFF
     Route: 048
     Dates: start: 20180403, end: 2018
  2. STIVARGA [Suspect]
     Active Substance: REGORAFENIB
     Indication: COLORECTAL CANCER METASTATIC
     Dosage: DAILY 3 WEEKS ON ONE WEEK OFF
     Route: 048
     Dates: start: 20180204, end: 2018
  3. STIVARGA [Suspect]
     Active Substance: REGORAFENIB
     Indication: COLORECTAL CANCER METASTATIC
     Dosage: DAILY DOSE 120 MG
     Route: 048

REACTIONS (17)
  - Skin discolouration [None]
  - Skin discomfort [Recovered/Resolved]
  - Dyspnoea [Recovering/Resolving]
  - Alopecia [None]
  - Palmar erythema [Not Recovered/Not Resolved]
  - Anxiety [Recovering/Resolving]
  - Insomnia [Recovering/Resolving]
  - Hypertension [Not Recovered/Not Resolved]
  - Hot flush [Recovering/Resolving]
  - Feeling hot [None]
  - Walking aid user [None]
  - Fatigue [Recovering/Resolving]
  - Product availability issue [None]
  - Dyspnoea exertional [None]
  - Mobility decreased [None]
  - Muscular weakness [Recovering/Resolving]
  - Drug dose omission [None]

NARRATIVE: CASE EVENT DATE: 2018
